FAERS Safety Report 7790237-6 (Version None)
Quarter: 2011Q3

REPORT INFORMATION
  Report Type: 
  Country: None (occurrence: None)
  Receive Date: 20110930
  Receipt Date: 20110926
  Transmission Date: 20111222
  Serious: Yes (Life-Threatening)
  Sender: FDA-Public Use
  Company Number: IE-TYCO HEALTHCARE/MALLINCKRODT-T201101853

PATIENT
  Sex: Female

DRUGS (1)
  1. OPTIRAY 160 [Suspect]
     Indication: COMPUTERISED TOMOGRAM
     Dosage: 90 ML, SINGLE
     Route: 042
     Dates: start: 20110924, end: 20110924

REACTIONS (3)
  - RASH [None]
  - ANAPHYLACTIC REACTION [None]
  - MALAISE [None]
